FAERS Safety Report 7548439-X (Version None)
Quarter: 2011Q2

REPORT INFORMATION
  Report Type: 
  Country: None (occurrence: None)
  Receive Date: 20110615
  Receipt Date: 20110601
  Transmission Date: 20111010
  Serious: Yes (Hospitalization, Other)
  Sender: FDA-Public Use
  Company Number: US-ELI_LILLY_AND_COMPANY-US200910001233

PATIENT
  Age: 60 Year
  Sex: Female
  Weight: 70.295 kg

DRUGS (5)
  1. LITHIUM [Concomitant]
  2. LEXAPRO [Concomitant]
  3. LAMICTAL [Concomitant]
  4. LUVOX [Concomitant]
  5. FORTEO [Suspect]
     Indication: OSTEOPOROSIS
     Dosage: UNK, EACH EVENING
     Route: 065
     Dates: start: 20090909

REACTIONS (3)
  - HOSPITALISATION [None]
  - TOXICITY TO VARIOUS AGENTS [None]
  - DIZZINESS [None]
